FAERS Safety Report 15849309 (Version 1)
Quarter: 2019Q1

REPORT INFORMATION
  Report Type: Spontaneous
  Country: HR (occurrence: HR)
  Receive Date: 20190121
  Receipt Date: 20190121
  Transmission Date: 20190417
  Serious: Yes (Other)
  Sender: FDA-Public Use
  Company Number: HR-TEVA-2019-HR-100036

PATIENT
  Sex: Male

DRUGS (3)
  1. CALIXTA [Suspect]
     Active Substance: MIRTAZAPINE
     Dosage: 450 MILLIGRAM DAILY;
     Route: 048
     Dates: start: 20181010, end: 20181010
  2. LOQUEN [Suspect]
     Active Substance: QUETIAPINE FUMARATE
     Dosage: 1 GRAM DAILY;
     Route: 048
     Dates: start: 20181010, end: 20181010
  3. PARACETAMOL PHARMAS [Suspect]
     Active Substance: ACETAMINOPHEN
     Dosage: 3 GRAM DAILY;
     Route: 048
     Dates: start: 20181010, end: 20181010

REACTIONS (2)
  - Suicide attempt [Unknown]
  - Incoherent [Unknown]

NARRATIVE: CASE EVENT DATE: 20181010
